FAERS Safety Report 9531383 (Version 2)
Quarter: 2013Q3

REPORT INFORMATION
  Report Type: Spontaneous
  Country: DE (occurrence: DE)
  Receive Date: 20130918
  Receipt Date: 20130926
  Transmission Date: 20140515
  Serious: Yes (Hospitalization, Other)
  Sender: FDA-Public Use
  Company Number: DE-US-EMD SERONO, INC.-7236695

PATIENT
  Age: 44 Year
  Sex: Female
  Weight: 65 kg

DRUGS (8)
  1. REBIF [Suspect]
     Indication: MULTIPLE SCLEROSIS
     Route: 058
     Dates: start: 200107, end: 20130720
  2. AMLODIPINE [Concomitant]
     Indication: PRODUCT USED FOR UNKNOWN INDICATION
     Dosage: MORNING AND EVENING
  3. BISOPROLOL [Concomitant]
     Indication: PRODUCT USED FOR UNKNOWN INDICATION
     Dosage: MORNING AND EVENING
  4. RAMIPRIL [Concomitant]
     Indication: PRODUCT USED FOR UNKNOWN INDICATION
     Dosage: MORNING
  5. DOXAZOSIN [Concomitant]
     Indication: PRODUCT USED FOR UNKNOWN INDICATION
     Dosage: EVENING
  6. EPOETIN ALFA [Concomitant]
     Indication: HAEMODIALYSIS
     Dosage: 3 TIMES WEEKLY IN HAEMODIALYSIS
  7. IRON [Concomitant]
     Indication: HAEMODIALYSIS
     Dosage: 3 TIMES WEEKLY IN HAEMODIALYSIS
  8. COLECALCIFEROL [Concomitant]
     Indication: HAEMODIALYSIS
     Dosage: 2 WEEKS IN HAEMODIALYSIS

REACTIONS (5)
  - Haemolytic uraemic syndrome [Recovering/Resolving]
  - Thrombotic microangiopathy [Recovering/Resolving]
  - Renal failure acute [Not Recovered/Not Resolved]
  - Gastroenteritis [Recovered/Resolved]
  - Renal failure [Not Recovered/Not Resolved]
